FAERS Safety Report 10245182 (Version 1)
Quarter: 2014Q2

REPORT INFORMATION
  Report Type: Spontaneous
  Country: US (occurrence: US)
  Receive Date: 20140618
  Receipt Date: 20140618
  Transmission Date: 20141212
  Serious: Yes (Other)
  Sender: FDA-Public Use
  Company Number: US-PFIZER INC-2014167144

PATIENT
  Age: 54 Year
  Sex: Female
  Weight: 58.96 kg

DRUGS (4)
  1. XANAX [Suspect]
     Indication: VOCAL CORD DISORDER
     Dosage: 2 MG, 2X/DAY
  2. ALBUTEROL [Concomitant]
     Indication: CHRONIC OBSTRUCTIVE PULMONARY DISEASE
     Dosage: UNK, AS NEEDED
  3. BROMELAIN [Concomitant]
     Dosage: UNK
  4. PAPAIN [Concomitant]
     Dosage: UNK

REACTIONS (1)
  - Hepatic cancer [Unknown]
